FAERS Safety Report 9649688 (Version 1)
Quarter: 2013Q4

REPORT INFORMATION
  Report Type: Spontaneous
  Country: GB (occurrence: GB)
  Receive Date: 20131028
  Receipt Date: 20131028
  Transmission Date: 20140711
  Serious: Yes (Other)
  Sender: FDA-Public Use
  Company Number: PHHY2013GB118360

PATIENT
  Age: 76 Year
  Sex: Female
  Weight: 67 kg

DRUGS (18)
  1. SIMVASTATIN [Suspect]
     Dosage: UNK
     Dates: start: 20110725, end: 20110822
  2. SIMVASTATIN [Suspect]
     Dosage: UNK
     Dates: start: 20110901
  3. LOFEPRAMINE [Concomitant]
     Dates: start: 20110418, end: 20110717
  4. SLOZEM [Concomitant]
     Dates: start: 20110519
  5. RAMIPRIL [Concomitant]
     Dates: start: 20110519
  6. ZOPICLONE [Concomitant]
     Dates: start: 20110519
  7. HYPROMELLOSE [Concomitant]
     Dates: start: 20110519
  8. DOCUSATE SODIUM [Concomitant]
     Dates: start: 20110519
  9. CALCICHEW D3 [Concomitant]
     Dates: start: 20110519
  10. GABAPENTIN [Concomitant]
     Dates: start: 20110519
  11. OMEPRAZOLE [Concomitant]
     Dates: start: 20110519
  12. TRIMETHOPRIM [Concomitant]
     Dates: start: 20110608, end: 20110615
  13. PARACETAMOL [Concomitant]
     Dates: start: 20110614, end: 20110626
  14. BECLOMETASONE [Concomitant]
     Dates: start: 20110614
  15. CLOPIDOGREL [Concomitant]
     Dates: start: 20110617, end: 20110717
  16. HYDROXOCOBALAMIN [Concomitant]
     Dates: start: 20110622, end: 20110817
  17. MEPTAZINOL [Concomitant]
     Dates: start: 20110815
  18. AQUEOUS CREAM [Concomitant]
     Dates: start: 20110519, end: 20110616

REACTIONS (1)
  - Contusion [Recovering/Resolving]
